FAERS Safety Report 6095929-5 (Version None)
Quarter: 2009Q1

REPORT INFORMATION
  Report Type: 
  Country: None (occurrence: None)
  Receive Date: 20090227
  Receipt Date: 20080717
  Transmission Date: 20090719
  Serious: No
  Sender: FDA-Public Use
  Company Number: A0738191A

PATIENT
  Sex: Female

DRUGS (1)
  1. LAMICTAL [Suspect]
     Indication: EPILEPSY
     Dosage: 150MG TWICE PER DAY
     Route: 048

REACTIONS (1)
  - PANIC ATTACK [None]
